FAERS Safety Report 4904971-6 (Version None)
Quarter: 2006Q1

REPORT INFORMATION
  Report Type: 
  Country: None (occurrence: None)
  Receive Date: 20060208
  Receipt Date: 20051031
  Transmission Date: 20060701
  Serious: No
  Sender: FDA-Public Use
  Company Number: US-GLAXOSMITHKLINE-A0580319A

PATIENT
  Age: 47 Year
  Sex: Female

DRUGS (4)
  1. PAXIL [Suspect]
     Indication: DEPRESSION
     Dosage: 10MG PER DAY
     Route: 048
     Dates: start: 20040601, end: 20040101
  2. PENTASA [Concomitant]
  3. VITAMINS [Concomitant]
  4. PAXIL [Concomitant]
     Dosage: 10MG PER DAY
     Route: 048
     Dates: start: 19950101, end: 20040601

REACTIONS (1)
  - DEPRESSION [None]
